FAERS Safety Report 10103133 (Version 1)
Quarter: 2014Q2

REPORT INFORMATION
  Report Type: Spontaneous
  Country: US (occurrence: US)
  Receive Date: 20140424
  Receipt Date: 20140424
  Transmission Date: 20141212
  Serious: No
  Sender: FDA-Public Use
  Company Number: US-BRISTOL-MYERS SQUIBB COMPANY-20114971

PATIENT
  Age: 79 Year
  Sex: Male
  Weight: 85.26 kg

DRUGS (1)
  1. ELIQUIS [Suspect]
     Indication: ATRIAL FIBRILLATION
     Dosage: STARTED ABOUT 3 MONTHS AGO

REACTIONS (1)
  - Eczema [Unknown]
